FAERS Safety Report 25044070 (Version 1)
Quarter: 2025Q1

REPORT INFORMATION
  Report Type: Spontaneous
  Country: JP (occurrence: JP)
  Receive Date: 20250306
  Receipt Date: 20250306
  Transmission Date: 20250408
  Serious: Yes (Other)
  Sender: STRIDES
  Company Number: JP-STRIDES ARCOLAB LIMITED-2025SP002817

PATIENT
  Age: 65 Year
  Sex: Female

DRUGS (4)
  1. LETROZOLE [Suspect]
     Active Substance: LETROZOLE
     Indication: Invasive ductal breast carcinoma
     Route: 065
  2. LAPATINIB [Suspect]
     Active Substance: LAPATINIB
     Indication: Invasive ductal breast carcinoma
     Route: 065
  3. DENOSUMAB [Suspect]
     Active Substance: DENOSUMAB
     Indication: Product used for unknown indication
  4. Calcium-carbonate/colecalciferol/magnesium-carbonate [Concomitant]
     Indication: Prophylaxis
     Route: 065

REACTIONS (4)
  - Hypocalcaemia [Unknown]
  - Metastases to bone [Unknown]
  - Disease progression [Unknown]
  - Drug ineffective [Unknown]
